FAERS Safety Report 4672443-2 (Version None)
Quarter: 2005Q2

REPORT INFORMATION
  Report Type: 
  Country: None (occurrence: None)
  Receive Date: 20050524
  Receipt Date: 20050512
  Transmission Date: 20051028
  Serious: Yes (Other)
  Sender: FDA-Public Use
  Company Number: PHBS2005CL06777

PATIENT
  Age: 65 Year
  Sex: Female

DRUGS (2)
  1. VITAMINS [Concomitant]
  2. TAREG D [Suspect]
     Dosage: VALS 160 / HCT 12.5 MG/DAY
     Route: 048
     Dates: start: 20020101

REACTIONS (1)
  - BONE NEOPLASM MALIGNANT [None]
